FAERS Safety Report 6259093-1 (Version None)
Quarter: 2009Q3

REPORT INFORMATION
  Report Type: 
  Country: None (occurrence: None)
  Receive Date: 20090702
  Receipt Date: 20090629
  Transmission Date: 20100115
  Serious: Yes (Death)
  Sender: FDA-Public Use
  Company Number: 2009008014

PATIENT
  Sex: Male

DRUGS (1)
  1. TREANDA [Suspect]
     Dosage: INTRAVENOUS
     Route: 042

REACTIONS (1)
  - DEATH [None]
